FAERS Safety Report 18476333 (Version 14)
Quarter: 2022Q1

REPORT INFORMATION
  Report Type: Report from Study
  Country: US (occurrence: US)
  Receive Date: 20201106
  Receipt Date: 20220325
  Transmission Date: 20220423
  Serious: Yes (Hospitalization, Other)
  Sender: FDA-Public Use
  Company Number: US-SHIRE-US202013345

PATIENT
  Age: 66 Year
  Sex: Female
  Weight: 65.76 kg

DRUGS (29)
  1. HUMAN IMMUNOGLOBULIN G\HYALURONIDASE RECOMBINANT HUMAN [Suspect]
     Active Substance: HUMAN IMMUNOGLOBULIN G\HYALURONIDASE RECOMBINANT HUMAN
     Indication: Immunodeficiency common variable
     Dosage: 50 GRAM, Q4WEEKS
     Route: 058
     Dates: start: 20150521
  2. HUMAN IMMUNOGLOBULIN G\HYALURONIDASE RECOMBINANT HUMAN [Suspect]
     Active Substance: HUMAN IMMUNOGLOBULIN G\HYALURONIDASE RECOMBINANT HUMAN
     Dosage: 50 GRAM, Q4WEEKS
     Route: 058
     Dates: start: 20150529
  3. HUMAN IMMUNOGLOBULIN G [Suspect]
     Active Substance: HUMAN IMMUNOGLOBULIN G
     Indication: Immunodeficiency common variable
     Dosage: UNK
     Route: 042
  4. COVID-19 VACCINE NOS [Suspect]
     Active Substance: COVID-19 VACCINE NOS
     Indication: COVID-19 immunisation
     Dosage: UNK
     Route: 065
  5. ACETAMINOPHEN [Concomitant]
     Active Substance: ACETAMINOPHEN
     Route: 065
  6. DIPHENHYDRAMINE HYDROCHLORIDE [Concomitant]
     Active Substance: DIPHENHYDRAMINE HYDROCHLORIDE
     Route: 065
  7. EPINEPHRINE [EPINEPHRINE HYDROCHLORIDE] [Concomitant]
     Route: 065
  8. SODIUM CHLORIDE [Concomitant]
     Active Substance: SODIUM CHLORIDE
     Route: 065
  9. LIDOCAINE [Concomitant]
     Active Substance: LIDOCAINE
     Route: 065
  10. ASPIRIN [Concomitant]
     Active Substance: ASPIRIN
     Route: 065
  11. DICYCLOMINE HYDROCHLORIDE [Concomitant]
     Active Substance: DICYCLOMINE HYDROCHLORIDE
     Route: 065
  12. GABAPENTIN [Concomitant]
     Active Substance: GABAPENTIN
     Route: 065
  13. TRAZODONE [Concomitant]
     Active Substance: TRAZODONE HYDROCHLORIDE
     Route: 065
  14. LAMICTAL [Concomitant]
     Active Substance: LAMOTRIGINE
     Route: 065
  15. METOPROLOL TARTRATE [Concomitant]
     Active Substance: METOPROLOL TARTRATE
  16. FLONASE [Concomitant]
     Active Substance: FLUTICASONE PROPIONATE
     Route: 065
  17. LORAZEPAM [Concomitant]
     Active Substance: LORAZEPAM
     Route: 065
  18. LAMICTAL XR [Concomitant]
     Active Substance: LAMOTRIGINE
  19. HERBALS\TURMERIC [Concomitant]
     Active Substance: HERBALS\TURMERIC
  20. ZYRTEC [Concomitant]
     Active Substance: CETIRIZINE HYDROCHLORIDE
  21. DIPHENOXYLATE [Concomitant]
     Active Substance: DIPHENOXYLATE
  22. ATROPINE [Concomitant]
     Active Substance: ATROPINE
  23. SODIUM CHLORIDE [Concomitant]
     Active Substance: SODIUM CHLORIDE
  24. FLUTICASONE PROPIONATE [Concomitant]
     Active Substance: FLUTICASONE PROPIONATE
  25. NEOMYCIN [Concomitant]
     Active Substance: NEOMYCIN
     Indication: Product used for unknown indication
  26. POLYMYXIN [Concomitant]
     Active Substance: POLYMYXIN
     Indication: Product used for unknown indication
     Route: 065
  27. DEXAMETHASONE [Concomitant]
     Active Substance: DEXAMETHASONE
     Indication: Product used for unknown indication
  28. PREDNISONE [Concomitant]
     Active Substance: PREDNISONE
     Indication: Product used for unknown indication
  29. LAMICTAL XR [Concomitant]
     Active Substance: LAMOTRIGINE
     Indication: Product used for unknown indication

REACTIONS (39)
  - Hepatomegaly [Recovered/Resolved]
  - Catheter placement [Unknown]
  - Myocardial infarction [Unknown]
  - Cataract [Unknown]
  - Retinal tear [Unknown]
  - Syncope [Unknown]
  - Influenza [Unknown]
  - Gastroenteritis viral [Unknown]
  - Malabsorption [Unknown]
  - Steatorrhoea [Unknown]
  - Pancreatic cyst [Unknown]
  - Arthritis [Unknown]
  - Hepatic cyst [Unknown]
  - Drug hypersensitivity [Recovering/Resolving]
  - Obstruction [Unknown]
  - Gastric disorder [Unknown]
  - Ill-defined disorder [Unknown]
  - Eye swelling [Recovering/Resolving]
  - Chest pain [Unknown]
  - Vaccination complication [Unknown]
  - Irritable bowel syndrome [Unknown]
  - Condition aggravated [Unknown]
  - Visual impairment [Unknown]
  - Dyspnoea [Unknown]
  - Eye infection [Unknown]
  - Diarrhoea [Unknown]
  - Abdominal pain upper [Unknown]
  - Infusion site haemorrhage [Unknown]
  - Pruritus [Unknown]
  - Fatigue [Unknown]
  - Infusion site pruritus [Unknown]
  - Ear infection [Unknown]
  - Tympanic membrane scarring [Unknown]
  - Constipation [Unknown]
  - COVID-19 [Unknown]
  - Hordeolum [Unknown]
  - Body height decreased [Unknown]
  - Needle issue [Unknown]
  - Device infusion issue [Unknown]

NARRATIVE: CASE EVENT DATE: 20210824
